FAERS Safety Report 5062872-X (Version None)
Quarter: 2006Q3

REPORT INFORMATION
  Report Type: 
  Country: None (occurrence: None)
  Receive Date: 20060724
  Receipt Date: 20060713
  Transmission Date: 20061208
  Serious: Yes (Other)
  Sender: FDA-Public Use
  Company Number: CHNY2006NZ02105

PATIENT
  Sex: Male

DRUGS (1)
  1. HABITROL [Suspect]
     Dosage: 21 MG
     Dates: start: 20060710, end: 20060711

REACTIONS (10)
  - DIARRHOEA [None]
  - DIZZINESS [None]
  - DRUG TOXICITY [None]
  - FEELING ABNORMAL [None]
  - HEADACHE [None]
  - HEART RATE ABNORMAL [None]
  - NAUSEA [None]
  - SKIN DISCOLOURATION [None]
  - THIRST [None]
  - VISUAL DISTURBANCE [None]
